FAERS Safety Report 11036686 (Version 2)
Quarter: 2015Q2

REPORT INFORMATION
  Report Type: Spontaneous
  Country: US (occurrence: US)
  Receive Date: 20150416
  Receipt Date: 20150515
  Transmission Date: 20150821
  Serious: No
  Sender: FDA-Public Use
  Company Number: US-009507513-1504USA014616

PATIENT
  Sex: Male

DRUGS (6)
  1. HEXADROL [Suspect]
     Active Substance: DEXAMETHASONE
     Indication: BRAIN OEDEMA
     Dosage: DOSE: 2.8 (2.1-3.8)MG, DAILY
     Route: 048
  2. THIOGUANINE [Concomitant]
     Active Substance: THIOGUANINE
     Indication: GLIOBLASTOMA
     Dosage: 80 MG/M2 EVERY 6 HOUR FROM DAYS 1 TO 3
  3. CELECOXIB. [Concomitant]
     Active Substance: CELECOXIB
     Indication: GLIOBLASTOMA
     Dosage: 400 MG, EVERY 12 HOUR FROM DAYS 11 TO 24
  4. BEVACIZUMAB [Concomitant]
     Active Substance: BEVACIZUMAB
     Indication: GLIOBLASTOMA
     Dosage: 10 MG/KG, EVERY 2 WEEKS
  5. LOMUSTINE. [Concomitant]
     Active Substance: LOMUSTINE
     Indication: GLIOBLASTOMA
     Dosage: A DOSE OF 100 MG/M2 ON DAY 4
     Route: 048
  6. CAPECITABINE. [Concomitant]
     Active Substance: CAPECITABINE
     Indication: GLIOBLASTOMA
     Dosage: 825 MG/M2, EVERY 12 HOUR FROM DAYS 11 TO 24

REACTIONS (3)
  - CD4 lymphocytes decreased [Unknown]
  - T-lymphocyte count decreased [Unknown]
  - CD8 lymphocytes decreased [Unknown]
